FAERS Safety Report 20997560 (Version 1)
Quarter: 2022Q2

REPORT INFORMATION
  Report Type: Report from Study
  Country: AU (occurrence: AU)
  Receive Date: 20220623
  Receipt Date: 20220623
  Transmission Date: 20220721
  Serious: Yes (Hospitalization)
  Sender: FDA-Public Use
  Company Number: AU-BRISTOL-MYERS SQUIBB COMPANY-2022-050653

PATIENT
  Age: 76 Year
  Sex: Male

DRUGS (45)
  1. POMALIDOMIDE [Suspect]
     Active Substance: POMALIDOMIDE
     Indication: Plasma cell myeloma refractory
     Dosage: 4 MG, CYC, DAY 1-21 OF 28 DAY CYCLE
     Route: 048
     Dates: start: 20210607, end: 20210627
  2. POMALIDOMIDE [Suspect]
     Active Substance: POMALIDOMIDE
     Route: 048
     Dates: start: 20210707, end: 20210728
  3. POMALIDOMIDE [Suspect]
     Active Substance: POMALIDOMIDE
     Route: 048
     Dates: end: 20220510
  4. DEXAMETHASONE [Suspect]
     Active Substance: DEXAMETHASONE
     Indication: Plasma cell myeloma refractory
     Dosage: CYC, DAYS 1,8, 15 AND 22 OF 28 DAY CYCLE.
     Route: 048
     Dates: start: 20210607, end: 20220510
  5. DEXAMETHASONE [Suspect]
     Active Substance: DEXAMETHASONE
     Route: 048
     Dates: start: 20210614
  6. DEXAMETHASONE [Suspect]
     Active Substance: DEXAMETHASONE
     Route: 048
     Dates: start: 20210621
  7. DEXAMETHASONE [Suspect]
     Active Substance: DEXAMETHASONE
     Route: 048
     Dates: start: 20210621
  8. DEXAMETHASONE [Suspect]
     Active Substance: DEXAMETHASONE
     Route: 048
     Dates: start: 20210706
  9. DEXAMETHASONE [Suspect]
     Active Substance: DEXAMETHASONE
     Route: 048
     Dates: end: 20220510
  10. BELANTAMAB MAFODOTIN [Suspect]
     Active Substance: BELANTAMAB MAFODOTIN
     Indication: Plasma cell myeloma refractory
     Route: 042
     Dates: start: 20210607, end: 20210607
  11. BELANTAMAB MAFODOTIN [Suspect]
     Active Substance: BELANTAMAB MAFODOTIN
     Route: 042
     Dates: end: 20220510
  12. ENOXAPARIN [Concomitant]
     Active Substance: ENOXAPARIN
     Indication: Pneumonia
     Route: 058
     Dates: start: 20220413, end: 20220516
  13. EMPAGLIFLOZIN\METFORMIN HYDROCHLORIDE [Concomitant]
     Active Substance: EMPAGLIFLOZIN\METFORMIN HYDROCHLORIDE
  14. EMPAGLIFLOZIN\METFORMIN HYDROCHLORIDE [Concomitant]
     Active Substance: EMPAGLIFLOZIN\METFORMIN HYDROCHLORIDE
  15. SALPRAZ [Concomitant]
  16. SALPRAZ [Concomitant]
  17. MAGNESIUM [Concomitant]
     Active Substance: MAGNESIUM
  18. MAGNESIUM [Concomitant]
     Active Substance: MAGNESIUM
  19. VALACYCLOVIR HYDROCHLORIDE [Concomitant]
     Active Substance: VALACYCLOVIR HYDROCHLORIDE
  20. VALACYCLOVIR HYDROCHLORIDE [Concomitant]
     Active Substance: VALACYCLOVIR HYDROCHLORIDE
  21. SULFAMETHOXAZOLE\TRIMETHOPRIM [Concomitant]
     Active Substance: SULFAMETHOXAZOLE\TRIMETHOPRIM
  22. SULFAMETHOXAZOLE\TRIMETHOPRIM [Concomitant]
     Active Substance: SULFAMETHOXAZOLE\TRIMETHOPRIM
  23. ALLOPURINOL [Concomitant]
     Active Substance: ALLOPURINOL
  24. ALLOPURINOL [Concomitant]
     Active Substance: ALLOPURINOL
  25. GLICLAZIDE [Concomitant]
     Active Substance: GLICLAZIDE
  26. GLICLAZIDE [Concomitant]
     Active Substance: GLICLAZIDE
  27. ZOLEDRONIC ACID [Concomitant]
     Active Substance: ZOLEDRONIC ACID
  28. ZOLEDRONIC ACID [Concomitant]
     Active Substance: ZOLEDRONIC ACID
  29. AMOXICILLIN [Concomitant]
     Active Substance: AMOXICILLIN
  30. AMOXICILLIN [Concomitant]
     Active Substance: AMOXICILLIN
  31. TAMSULOSIN [Concomitant]
     Active Substance: TAMSULOSIN
  32. TAMSULOSIN [Concomitant]
     Active Substance: TAMSULOSIN
  33. METFORMIN [Concomitant]
     Active Substance: METFORMIN HYDROCHLORIDE
  34. METFORMIN [Concomitant]
     Active Substance: METFORMIN HYDROCHLORIDE
  35. ZIRCOL [Concomitant]
  36. ZIRCOL [Concomitant]
  37. TELMISARTAN [Concomitant]
     Active Substance: TELMISARTAN
  38. TELMISARTAN [Concomitant]
     Active Substance: TELMISARTAN
  39. ATORVASTATIN CALCIUM [Concomitant]
     Active Substance: ATORVASTATIN CALCIUM
  40. ATORVASTATIN CALCIUM [Concomitant]
     Active Substance: ATORVASTATIN CALCIUM
  41. ALLOPURINOL [Concomitant]
     Active Substance: ALLOPURINOL
  42. ALLOPURINOL [Concomitant]
     Active Substance: ALLOPURINOL
  43. MIRCERA [Concomitant]
     Active Substance: METHOXY POLYETHYLENE GLYCOL-EPOETIN BETA
  44. MIRCERA [Concomitant]
     Active Substance: METHOXY POLYETHYLENE GLYCOL-EPOETIN BETA
  45. MAGNESIUM ASPARTATE [Concomitant]
     Active Substance: MAGNESIUM ASPARTATE
     Indication: Hypomagnesaemia
     Route: 048
     Dates: start: 20220317

REACTIONS (1)
  - COVID-19 [Recovered/Resolved]

NARRATIVE: CASE EVENT DATE: 20220421
